FAERS Safety Report 5218328-4 (Version None)
Quarter: 2007Q1

REPORT INFORMATION
  Report Type: 
  Country: None (occurrence: None)
  Receive Date: 20070123
  Receipt Date: 20070123
  Transmission Date: 20070707
  Serious: No
  Sender: FDA-Public Use
  Company Number: None

PATIENT
  Age: 64 Year
  Sex: Female

DRUGS (2)
  1. KETOROLAC TROMETHAMINE [Suspect]
     Indication: PAIN
     Dosage: 30MG IV Q8H X 24 HOURS
     Route: 042
     Dates: start: 20060119
  2. KETOROLAC TROMETHAMINE [Suspect]
     Indication: PAIN
     Dosage: 30MG IV Q8H X 24 HOURS
     Route: 042
     Dates: start: 20060120

REACTIONS (4)
  - EYE SWELLING [None]
  - LIP SWELLING [None]
  - PRURITUS [None]
  - THROAT TIGHTNESS [None]
